FAERS Safety Report 13497699 (Version 1)
Quarter: 2017Q2

REPORT INFORMATION
  Report Type: Spontaneous
  Country: FR (occurrence: FR)
  Receive Date: 20170428
  Receipt Date: 20170428
  Transmission Date: 20170830
  Serious: Yes (Other)
  Sender: FDA-Public Use
  Company Number: FR-BAYER-2017-077833

PATIENT
  Age: 28 Year
  Sex: Male

DRUGS (1)
  1. IZILOX [Suspect]
     Active Substance: MOXIFLOXACIN HYDROCHLORIDE
     Indication: TUBERCULOSIS
     Dosage: 400 MG, QD
     Route: 048

REACTIONS (2)
  - Off label use [None]
  - Iris transillumination defect [Recovered/Resolved]
